FAERS Safety Report 21034727 (Version 4)
Quarter: 2022Q4

REPORT INFORMATION
  Report Type: Report from Study
  Country: BE (occurrence: BE)
  Receive Date: 20220701
  Receipt Date: 20221118
  Transmission Date: 20230113
  Serious: Yes (Hospitalization)
  Sender: FDA-Public Use
  Company Number: BE-KOREA IPSEN Pharma-2022-18380

PATIENT

DRUGS (13)
  1. CABOZANTINIB [Suspect]
     Active Substance: CABOZANTINIB
     Indication: Renal cell carcinoma
     Dosage: 40 MG, QD
     Route: 048
     Dates: start: 20220611, end: 20220626
  2. PANTOZOL [Concomitant]
     Active Substance: PANTOPRAZOLE SODIUM
     Indication: Gastrointestinal disorder prophylaxis
     Dosage: 40 MG ONCE DAILY (ONGOING)
     Route: 048
     Dates: start: 20210518
  3. MOVICOL [Concomitant]
     Active Substance: POLYETHYLENE GLYCOL 3350\POTASSIUM CHLORIDE\SODIUM BICARBONATE\SODIUM CHLORIDE
     Indication: Constipation
     Dosage: 13.8 GRAM ONCE DAILY (ONGOING)
     Route: 048
     Dates: start: 20210729
  4. CLOPIDOGREL [Concomitant]
     Active Substance: CLOPIDOGREL BISULFATE
     Indication: Cardiac disorder
     Dosage: 75 MG ONCE DAILY (ONGOING)
     Route: 048
     Dates: start: 20210518
  5. CORDARONE [Concomitant]
     Active Substance: AMIODARONE HYDROCHLORIDE
     Indication: Cardiac disorder
     Dosage: 100 MG ONCE DAILY (ONGOING)
     Route: 048
     Dates: start: 20210604
  6. BISOPROLOL [Concomitant]
     Active Substance: BISOPROLOL
     Indication: Cardiac disorder
     Dosage: 5 MG ONCE DAILY (ONGOING)
     Route: 048
     Dates: start: 20210610
  7. AMLODIPINE [Concomitant]
     Active Substance: AMLODIPINE BESYLATE
     Indication: Cardiac disorder
     Dosage: 5 MG ONCE DAILY (ONGOING)
     Route: 048
     Dates: start: 20200612
  8. PRAVASTATIN [Concomitant]
     Active Substance: PRAVASTATIN
     Indication: Cardiac disorder
     Dosage: 40 MG ONCE DAILY (ONGOING)
     Route: 048
     Dates: start: 20201207
  9. OXYCODONE HYDROCHLORIDE [Concomitant]
     Active Substance: OXYCODONE HYDROCHLORIDE
     Indication: Pain
     Dosage: 5 MG ON DEMAND (4X/D) (ONGOING)
     Route: 048
     Dates: start: 20220610
  10. FENTANYL [Concomitant]
     Active Substance: FENTANYL
     Indication: Pain
     Dosage: 25 MICROGRAM, ONCE EVERY 3 D (ONGOING)
     Route: 062
     Dates: start: 20220610
  11. DAFALGAN [Concomitant]
     Active Substance: ACETAMINOPHEN
     Indication: Pain
     Dosage: 1 G, 3 X PER DAY (ONGOING)
     Route: 048
     Dates: start: 20210629
  12. GLIQUIDONE [Concomitant]
     Active Substance: GLIQUIDONE
     Indication: Diabetes mellitus
     Dosage: 15 MG ONCE DAILY (ONGOING)
     Route: 048
     Dates: start: 20201015
  13. GLIQUIDONE [Concomitant]
     Active Substance: GLIQUIDONE
     Indication: Diabetes mellitus

REACTIONS (1)
  - General physical health deterioration [Not Recovered/Not Resolved]

NARRATIVE: CASE EVENT DATE: 20220627
